FAERS Safety Report 10169195 (Version 5)
Quarter: 2014Q3

REPORT INFORMATION
  Report Type: Spontaneous
  Country: US (occurrence: None)
  Receive Date: 20140509
  Receipt Date: 20140818
  Transmission Date: 20150326
  Serious: Yes (Hospitalization)
  Sender: FDA-Public Use
  Company Number: UTC-048258

PATIENT
  Age: 54 Year
  Sex: Male
  Weight: 87.1 kg

DRUGS (3)
  1. SILDENAFIL [Concomitant]
     Active Substance: SILDENAFIL
  2. TYVASO [Suspect]
     Active Substance: TREPROSTINIL
     Indication: COR PULMONALE CHRONIC
     Dosage: 18 TO 90 MCG QID, INHALATION ?
     Route: 055
     Dates: start: 20131009, end: 201406
  3. TYVASO [Suspect]
     Active Substance: TREPROSTINIL
     Indication: PULMONARY HYPERTENSION
     Dosage: 18 TO 90 MCG QID, INHALATION ?
     Route: 055
     Dates: start: 20131009, end: 201406

REACTIONS (3)
  - Device malfunction [None]
  - Liver transplant [None]
  - Headache [None]

NARRATIVE: CASE EVENT DATE: 201404
